FAERS Safety Report 21190508 (Version 1)
Quarter: 2022Q3

REPORT INFORMATION
  Report Type: Spontaneous
  Country: US (occurrence: US)
  Receive Date: 20220809
  Receipt Date: 20220809
  Transmission Date: 20221026
  Serious: No
  Sender: FDA-Public Use
  Company Number: US-BIOVITRUM-2022US08720

PATIENT
  Age: 26 Year
  Sex: Female

DRUGS (2)
  1. KINERET [Suspect]
     Active Substance: ANAKINRA
     Indication: Osteomyelitis chronic
     Dates: start: 202201
  2. KINERET [Suspect]
     Active Substance: ANAKINRA
     Dates: start: 20211121

REACTIONS (4)
  - COVID-19 [Unknown]
  - Sinusitis [Unknown]
  - Product dose omission issue [Unknown]
  - Off label use [Not Recovered/Not Resolved]

NARRATIVE: CASE EVENT DATE: 20211121
